FAERS Safety Report 22171088 (Version 1)
Quarter: 2023Q2

REPORT INFORMATION
  Report Type: Spontaneous
  Country: GB (occurrence: GB)
  Receive Date: 20230404
  Receipt Date: 20230404
  Transmission Date: 20230722
  Serious: Yes (Disabling, Other)
  Sender: FDA-Public Use
  Company Number: None

PATIENT
  Age: 18 Year
  Sex: Male

DRUGS (1)
  1. FINASTERIDE [Suspect]
     Active Substance: FINASTERIDE
     Indication: Alopecia
     Dosage: 1MG A DAY
     Dates: start: 20220815, end: 20221001

REACTIONS (3)
  - Erectile dysfunction [Not Recovered/Not Resolved]
  - Semen volume decreased [Not Recovered/Not Resolved]
  - Semen viscosity decreased [Not Recovered/Not Resolved]

NARRATIVE: CASE EVENT DATE: 20220901
